FAERS Safety Report 14520025 (Version 1)
Quarter: 2018Q1

REPORT INFORMATION
  Report Type: Spontaneous
  Country: US (occurrence: US)
  Receive Date: 20180210
  Receipt Date: 20180210
  Transmission Date: 20180509
  Serious: No
  Sender: FDA-Public Use
  Company Number: None

PATIENT
  Age: 76 Year
  Sex: Female

DRUGS (1)
  1. CAPECITABINE 500MG WESTWARD [Suspect]
     Active Substance: CAPECITABINE
     Indication: PRODUCT USED FOR UNKNOWN INDICATION
     Dosage: 2000MG BID FOR 14 DAYS, THEN OFF FOR 7 DAYS PO
     Route: 048
     Dates: start: 20171019

REACTIONS (7)
  - Rash [None]
  - Influenza [None]
  - Nervousness [None]
  - Drug dose omission [None]
  - Dry skin [None]
  - Rash erythematous [None]
  - Skin discolouration [None]

NARRATIVE: CASE EVENT DATE: 20170209
